FAERS Safety Report 10210099 (Version 3)
Quarter: 2015Q2

REPORT INFORMATION
  Report Type: Other
  Country: AR (occurrence: AR)
  Receive Date: 20140602
  Receipt Date: 20150519
  Transmission Date: 20150821
  Serious: Yes (Hospitalization, Other)
  Sender: FDA-Public Use
  Company Number: AR-SHIRE-AR201402513

PATIENT
  Age: 1 Year
  Sex: Male

DRUGS (4)
  1. ELAPRASE [Suspect]
     Active Substance: IDURSULFASE
     Dosage: 9 MG, 1X/WEEK (1.5 VIAL DILUTED IN 100 ML SALINE EVERY WEEK)
     Route: 041
  2. ELAPRASE [Suspect]
     Active Substance: IDURSULFASE
     Indication: MUCOPOLYSACCHARIDOSIS II
     Dosage: 12 MG (TWO VIALS), 1X/WEEK (ALTERNATING WITH 6 MG)
     Route: 041
  3. PARACETAMOL [Concomitant]
     Active Substance: ACETAMINOPHEN
     Indication: PREMEDICATION
     Dosage: 10 MG/KG, OTHER 30 MINUTES PRIOR TO INFUSION
     Route: 065
  4. BENADRYL [Concomitant]
     Active Substance: DIPHENHYDRAMINE HYDROCHLORIDE
     Indication: PREMEDICATION
     Dosage: UNK, OTHER (30 MIN PRIOR TO INFUSION)
     Route: 065

REACTIONS (2)
  - Staphylococcal sepsis [Recovering/Resolving]
  - Device related sepsis [Recovering/Resolving]

NARRATIVE: CASE EVENT DATE: 201405
